FAERS Safety Report 5122652-3 (Version None)
Quarter: 2006Q4

REPORT INFORMATION
  Report Type: 
  Country: None (occurrence: None)
  Receive Date: 20061004
  Receipt Date: 20060926
  Transmission Date: 20070319
  Serious: Yes (Death, Hospitalization, Congenital Anomaly, Other)
  Sender: FDA-Public Use
  Company Number: 2006SP001282

PATIENT
  Sex: Male

DRUGS (1)
  1. INTRON A [Suspect]
     Indication: NEOPLASM MALIGNANT
     Dosage: SEE IMAGE
     Route: 058
     Dates: start: 20050501, end: 20051001

REACTIONS (21)
  - ATRIOVENTRICULAR BLOCK FIRST DEGREE [None]
  - BRADYCARDIA NEONATAL [None]
  - CARDIAC ARREST NEONATAL [None]
  - CARDIAC FAILURE [None]
  - CARDIAC PROCEDURE COMPLICATION [None]
  - CIRCULATORY COLLAPSE [None]
  - COARCTATION OF THE AORTA [None]
  - CONGENITAL ANOMALY [None]
  - CONGENITAL AORTIC VALVE INCOMPETENCE [None]
  - CONGENITAL CARDIOVASCULAR ANOMALY [None]
  - CONGENITAL PULMONARY VALVE DISORDER [None]
  - DRUG EXPOSURE DURING PREGNANCY [None]
  - DUODENAL ATRESIA [None]
  - HEART DISEASE CONGENITAL [None]
  - HYPOPLASTIC LEFT HEART SYNDROME [None]
  - ILEAL ATRESIA [None]
  - INTESTINAL MALROTATION [None]
  - PATENT DUCTUS ARTERIOSUS [None]
  - PERSISTENT LEFT SUPERIOR VENA CAVA [None]
  - REFUSAL OF TREATMENT BY RELATIVE [None]
  - SITUS INVERSUS [None]
